FAERS Safety Report 17027813 (Version 1)
Quarter: 2019Q4

REPORT INFORMATION
  Report Type: Spontaneous
  Country: SK (occurrence: SK)
  Receive Date: 20191113
  Receipt Date: 20191113
  Transmission Date: 20200122
  Serious: Yes (Other)
  Sender: FDA-Public Use
  Company Number: SK-MYLANLABS-2019M1025157

PATIENT
  Age: 59 Year
  Sex: Male

DRUGS (9)
  1. METFORMIN [Interacting]
     Active Substance: METFORMIN HYDROCHLORIDE
     Dosage: 1000 MILLIGRAM, QD (1000 MG, BID)
     Route: 065
  2. METPROLOL [Interacting]
     Active Substance: METOPROLOL
     Dosage: 1 DOSAGE FORM
     Route: 065
  3. URAPIDIL [Interacting]
     Active Substance: URAPIDIL
     Indication: PRODUCT USED FOR UNKNOWN INDICATION
     Dosage: 2 DF, UNK
     Route: 065
  4. METFORMIN [Suspect]
     Active Substance: METFORMIN HYDROCHLORIDE
     Indication: DIABETES MELLITUS
     Dosage: 2 DF, UNK
     Route: 065
  5. GLIMEPRID [Interacting]
     Active Substance: GLIMEPIRIDE
     Indication: DIABETES MELLITUS
     Dosage: 6 MILLIGRAM(6 MG, 1 DAY)
     Route: 065
  6. ASPIRIN                            /00002701/ [Interacting]
     Active Substance: ASPIRIN
     Indication: PRODUCT USED FOR UNKNOWN INDICATION
     Dosage: 1 DF, UNK
     Route: 065
  7. URAPIDIL [Interacting]
     Active Substance: URAPIDIL
     Dosage: 3 MILLIGRAM, QD(3 MG, BID)
     Route: 065
  8. ASPIRIN                            /00002701/ [Interacting]
     Active Substance: ASPIRIN
     Dosage: 100 MILLIGRAM, QD
     Route: 065
  9. METPROLOL [Interacting]
     Active Substance: METOPROLOL
     Indication: PRODUCT USED FOR UNKNOWN INDICATION
     Dosage: 50 MILLIGRAM, QD(50 MG, BID)
     Route: 065

REACTIONS (2)
  - Erectile dysfunction [Unknown]
  - Drug interaction [Unknown]
